FAERS Safety Report 20781059 (Version 1)
Quarter: 2022Q2

REPORT INFORMATION
  Report Type: Spontaneous
  Country: US (occurrence: US)
  Receive Date: 20220504
  Receipt Date: 20220504
  Transmission Date: 20220721
  Serious: Yes (Other)
  Sender: FDA-Public Use
  Company Number: US-AMGEN-USASP2022073392

PATIENT
  Sex: Male
  Weight: 45.805 kg

DRUGS (22)
  1. NEUPOGEN [Suspect]
     Active Substance: FILGRASTIM
     Indication: Product used for unknown indication
     Dosage: UNK
     Route: 065
  2. LENVIMA [Suspect]
     Active Substance: LENVATINIB
     Indication: Metastases to lung
     Dosage: 20 MILLIGRAM, 2*10 MG DAILY
     Route: 048
     Dates: start: 20211020
  3. LENVIMA [Suspect]
     Active Substance: LENVATINIB
     Indication: Bone cancer
  4. LENVIMA [Suspect]
     Active Substance: LENVATINIB
     Indication: Chemotherapy
  5. LENVIMA [Suspect]
     Active Substance: LENVATINIB
     Indication: Bone cancer
  6. MAGNESIUM [Concomitant]
     Active Substance: MAGNESIUM
     Dosage: UNK
  7. POTASSIUM PHOSPHATES [Concomitant]
     Active Substance: POTASSIUM PHOSPHATE, DIBASIC\POTASSIUM PHOSPHATE, MONOBASIC
  8. LEVOTHYROXINE SODIUM [Concomitant]
     Active Substance: LEVOTHYROXINE SODIUM
     Dosage: UNK
  9. PREVACID [Concomitant]
     Active Substance: LANSOPRAZOLE
  10. IFOSFAMIDE [Concomitant]
     Active Substance: IFOSFAMIDE
  11. MINERALS\VITAMINS [Concomitant]
     Active Substance: MINERALS\VITAMINS
  12. SENNOSIDES [Concomitant]
     Active Substance: SENNOSIDES
  13. HYDROMORPHONE [Concomitant]
     Active Substance: HYDROMORPHONE
  14. DIMETHICONE [Concomitant]
     Active Substance: DIMETHICONE
  15. TUMS [Concomitant]
     Active Substance: CALCIUM CARBONATE
  16. XARELTO [Concomitant]
     Active Substance: RIVAROXABAN
  17. SODIUM CHLORIDE [Concomitant]
     Active Substance: SODIUM CHLORIDE
  18. MIRALAX [Concomitant]
     Active Substance: POLYETHYLENE GLYCOL 3350
  19. LACTULOSE [Concomitant]
     Active Substance: LACTULOSE
  20. GABAPENTIN [Concomitant]
     Active Substance: GABAPENTIN
  21. DIAZEPAM [Concomitant]
     Active Substance: DIAZEPAM
  22. ACETAMINOPHEN [Concomitant]
     Active Substance: ACETAMINOPHEN

REACTIONS (2)
  - Nephropathy toxic [Unknown]
  - Neoplasm recurrence [Unknown]
